FAERS Safety Report 6190914-7 (Version None)
Quarter: 2009Q2

REPORT INFORMATION
  Report Type: 
  Country: None (occurrence: None)
  Receive Date: 20090513
  Receipt Date: 20090429
  Transmission Date: 20091009
  Serious: Yes (Hospitalization)
  Sender: FDA-Public Use
  Company Number: CIP09001049

PATIENT
  Age: 75 Year
  Sex: Female
  Weight: 65 kg

DRUGS (22)
  1. ACTONEL [Suspect]
     Indication: OSTEOPOROSIS
     Dosage: 35 MG WEEKLY, ORAL
     Route: 048
  2. ACTONEL [Suspect]
     Indication: OSTEOPOROSIS
     Dosage: 5 MG DAILY, ORAL; 5 MG, DAILY
     Route: 048
  3. VYTORIN [Suspect]
     Indication: BLOOD CHOLESTEROL INCREASED
  4. TRAMAL /00599201/ (TRAMADOL) [Suspect]
  5. PAROXETINE HCL [Suspect]
     Indication: DEPRESSION
  6. PAROXETINE HCL [Suspect]
     Indication: PROPHYLAXIS
  7. CLONAZEPAM [Concomitant]
  8. OSCAL D /00944201/ (CALCIUM CARBONATE, COLECALCIFEROL) [Concomitant]
  9. NIMESULIDE (NIMESULIDE) [Concomitant]
  10. PANTOPRAZOLE SODIUM [Concomitant]
  11. MOTILIUM /00498201/ (DOMPERIDONE) [Concomitant]
  12. DIMETICONE (DIMETICONE) [Concomitant]
  13. DRUGS FOR FUNCTIONAL GASTROINTEST. DISORDERS [Concomitant]
  14. PURAN T4 (LEVOTHYROXINE SODIUM) [Concomitant]
  15. BENERVA (THIAMINE HYDROCHLORIDE) [Concomitant]
  16. LORAZEPAM [Concomitant]
  17. REFORGAN (ARGININE ASPARTATE) [Concomitant]
  18. VITAMIN C /00008001/ (ASCORBIC ACID) [Concomitant]
  19. VITAMIN E /00110501/ (TOCOPHEROL) [Concomitant]
  20. SOMALGIN /00002701/ (ACETYLSALICYLIC ACID) [Concomitant]
  21. CONDROFLEX (CHONDROITIN SULFATE SODIUM, GLUCOSAMINE SULFATE) [Concomitant]
  22. FLUNARIN (FLUNARIZINE DIHYDROCHLORIDE) [Concomitant]

REACTIONS (16)
  - ALANINE AMINOTRANSFERASE INCREASED [None]
  - ASPARTATE AMINOTRANSFERASE INCREASED [None]
  - COMA [None]
  - CONDITION AGGRAVATED [None]
  - DRUG DOSE OMISSION [None]
  - FALL [None]
  - FAT EMBOLISM [None]
  - FRACTURE [None]
  - GALLBLADDER DISORDER [None]
  - GAMMA-GLUTAMYLTRANSFERASE INCREASED [None]
  - GASTRITIS [None]
  - HEMIPARESIS [None]
  - INCORRECT DOSE ADMINISTERED [None]
  - OSTEOPOROSIS [None]
  - TIBIA FRACTURE [None]
  - WRONG TECHNIQUE IN DRUG USAGE PROCESS [None]
